FAERS Safety Report 6448394-X (Version None)
Quarter: 2009Q4

REPORT INFORMATION
  Report Type: 
  Country: None (occurrence: None)
  Receive Date: 20091120
  Receipt Date: 20091109
  Transmission Date: 20100525
  Serious: Yes (Other)
  Sender: FDA-Public Use
  Company Number: PHHY2009JP47178

PATIENT
  Age: 57 Year
  Sex: Male

DRUGS (4)
  1. METOPROLOL TARTRATE [Suspect]
     Dosage: UNK
     Route: 048
  2. ASPIRIN [Suspect]
     Route: 048
  3. WARFARIN SODIUM [Suspect]
     Route: 048
  4. CANDESARTAN CILEXETIL [Suspect]
     Route: 048

REACTIONS (6)
  - ATRIAL FIBRILLATION [None]
  - DYSPNOEA EXERTIONAL [None]
  - LEFT VENTRICULAR DYSFUNCTION [None]
  - VENTRICULAR ARRHYTHMIA [None]
  - VENTRICULAR EXTRASYSTOLES [None]
  - VENTRICULAR TACHYCARDIA [None]
